FAERS Safety Report 11036853 (Version 1)
Quarter: 2015Q2

REPORT INFORMATION
  Report Type: Spontaneous
  Country: US (occurrence: US)
  Receive Date: 20150416
  Receipt Date: 20150416
  Transmission Date: 20150821
  Serious: No
  Sender: FDA-Public Use
  Company Number: US-ELI_LILLY_AND_COMPANY-US201503009690

PATIENT
  Sex: Female

DRUGS (2)
  1. CLONAZEPAM. [Concomitant]
     Active Substance: CLONAZEPAM
  2. CYMBALTA [Suspect]
     Active Substance: DULOXETINE HYDROCHLORIDE
     Indication: DEPRESSION
     Dosage: 120 MG, QD
     Route: 048
     Dates: start: 2005

REACTIONS (4)
  - Emotional disorder [Not Recovered/Not Resolved]
  - Urine output decreased [Unknown]
  - Crying [Not Recovered/Not Resolved]
  - Cystitis interstitial [Recovering/Resolving]

NARRATIVE: CASE EVENT DATE: 2007
